FAERS Safety Report 7548024-X (Version None)
Quarter: 2011Q2

REPORT INFORMATION
  Report Type: 
  Country: None (occurrence: None)
  Receive Date: 20110608
  Receipt Date: 20110526
  Transmission Date: 20111010
  Serious: Yes (Hospitalization)
  Sender: FDA-Public Use
  Company Number: TIF2011A00082

PATIENT
  Age: 37 Year
  Sex: Male

DRUGS (10)
  1. ENOXAPARIN SODIUM [Suspect]
     Indication: THROMBOLYSIS
     Dosage: SUBCUTANEOUS
     Route: 058
  2. LANSOPRAZOLE [Suspect]
     Indication: PROPHYLAXIS AGAINST GASTROINTESTINAL ULCER
     Dosage: 15 MG (15 MG 1 -2), ORAL
     Route: 048
     Dates: start: 20110224, end: 20110311
  3. CEFAZOLIN [Suspect]
     Indication: STAPHYLOCOCCAL INFECTION
     Dosage: 1 GM, INTRAVENOUS
     Route: 042
     Dates: start: 20110301, end: 20110307
  4. ENOXAPARIN SODIUM [Concomitant]
  5. LIXIDOL (KETOROLAC TROMETHAMINE) [Suspect]
     Indication: PAIN
     Dosage: 30 MG/ML, INJECTION
     Dates: start: 20110301, end: 20110303
  6. LEVOFLOXACIN [Suspect]
     Dosage: 100 MG/ML-1) INTRAVENOUS
     Route: 042
     Dates: start: 20110305, end: 20110311
  7. DOXYCYCLINE HYCLATE [Suspect]
     Indication: STAPHYLOCOCCAL INFECTION
     Dosage: 200 MG (100 MG 1 IN 2 D),
     Dates: start: 20110305, end: 20110311
  8. HALCION [Suspect]
     Indication: SEDATION
     Dosage: 25 MG (250 MCG, 1 IN 1 D), ORAL
     Route: 048
     Dates: start: 20110301, end: 20110310
  9. BETADINE [Suspect]
     Indication: INFECTION PROPHYLAXIS
     Dosage: 1 IN 1 D, TOPICAL
     Route: 061
     Dates: start: 20110225, end: 20110307
  10. VOLTAREN [Suspect]
     Indication: PAIN
     Dosage: 50 MG, ORAL
     Route: 048
     Dates: start: 20110224, end: 20110303

REACTIONS (2)
  - CONDITION AGGRAVATED [None]
  - RASH [None]
